FAERS Safety Report 25748262 (Version 1)
Quarter: 2025Q3

REPORT INFORMATION
  Report Type: Spontaneous
  Country: US (occurrence: US)
  Receive Date: 20250902
  Receipt Date: 20250902
  Transmission Date: 20251021
  Serious: Yes (Other)
  Sender: ABBVIE
  Company Number: US-ABBVIE-6438700

PATIENT
  Sex: Female

DRUGS (1)
  1. RESTASIS [Suspect]
     Active Substance: CYCLOSPORINE
     Indication: Dry eye
     Route: 047

REACTIONS (8)
  - Cataract operation [Unknown]
  - Eye disorder [Unknown]
  - Ocular hyperaemia [Unknown]
  - Vision blurred [Unknown]
  - Eyelid margin crusting [Unknown]
  - Eye pain [Unknown]
  - Drug ineffective [Unknown]
  - Glaucoma [Unknown]
